FAERS Safety Report 4533268-1 (Version None)
Quarter: 2004Q4

REPORT INFORMATION
  Report Type: 
  Country: None (occurrence: None)
  Receive Date: 20041221
  Receipt Date: 20041213
  Transmission Date: 20050328
  Serious: Yes (Hospitalization)
  Sender: FDA-Public Use
  Company Number: US-BRISTOL-MYERS SQUIBB COMPANY-12793154

PATIENT
  Age: 61 Year
  Sex: Female

DRUGS (6)
  1. CARBOPLATIN [Suspect]
     Indication: LUNG NEOPLASM MALIGNANT
     Route: 042
     Dates: start: 20041123, end: 20041123
  2. ANZEMET [Suspect]
     Indication: PROPHYLAXIS OF NAUSEA AND VOMITING
     Dates: start: 20041123, end: 20041123
  3. TAXOL [Concomitant]
     Indication: LUNG NEOPLASM MALIGNANT
     Route: 042
     Dates: start: 20041123, end: 20041123
  4. BENADRYL [Concomitant]
     Dates: start: 20041123, end: 20041123
  5. DECADRON [Concomitant]
     Dates: start: 20041123, end: 20041123
  6. COMPAZINE [Concomitant]
     Dates: start: 20041123, end: 20041123

REACTIONS (1)
  - SHOCK [None]
